FAERS Safety Report 10698707 (Version 2)
Quarter: 2015Q1

REPORT INFORMATION
  Report Type: Spontaneous
  Country: FR (occurrence: FR)
  Receive Date: 20150108
  Receipt Date: 20150108
  Transmission Date: 20150721
  Serious: Yes (Other)
  Sender: FDA-Public Use
  Company Number: FR-ABBVIE-14P-056-1220355-00

PATIENT
  Age: 38 Year
  Sex: Female

DRUGS (1)
  1. ZECLAR 500MG [Suspect]
     Active Substance: CLARITHROMYCIN
     Indication: BRONCHITIS
     Route: 048
     Dates: start: 20140210, end: 20140218

REACTIONS (1)
  - Abortion spontaneous [Unknown]
